FAERS Safety Report 7984294-1 (Version None)
Quarter: 2011Q4

REPORT INFORMATION
  Report Type: 
  Country: None (occurrence: None)
  Receive Date: 20111214
  Receipt Date: 20111130
  Transmission Date: 20120403
  Serious: Yes (Hospitalization, Other)
  Sender: FDA-Public Use
  Company Number: AXC-2011-000505

PATIENT
  Age: 13 Year
  Sex: Female

DRUGS (2)
  1. URSODEOXYCHOLIC ACID (URSODEOXYCHOLIC ACID) UNKNOWN [Suspect]
     Indication: CHOLANGITIS SCLEROSING
  2. MESALAMINE [Suspect]
     Indication: CROHN'S DISEASE

REACTIONS (3)
  - AUTOIMMUNE PANCREATITIS [None]
  - COLITIS [None]
  - BLOOD ALBUMIN DECREASED [None]
